FAERS Safety Report 6128770-5 (Version None)
Quarter: 2009Q1

REPORT INFORMATION
  Report Type: 
  Country: None (occurrence: None)
  Receive Date: 20090320
  Receipt Date: 20090317
  Transmission Date: 20090719
  Serious: Yes (Life-Threatening, Hospitalization)
  Sender: FDA-Public Use
  Company Number: 188294USA

PATIENT
  Age: 67 Year
  Sex: Male

DRUGS (4)
  1. BISOPRODOL FUMARATE [Suspect]
     Indication: HYPERTENSION
     Dosage: 5 MG (5 MG,1 IN 1 D),ORAL
     Route: 048
  2. ACETYLSALICYLIC ACID [Concomitant]
  3. NITROGLYCERIN [Concomitant]
  4. PIOGLITAZONE [Concomitant]

REACTIONS (2)
  - ATRIOVENTRICULAR BLOCK COMPLETE [None]
  - SYNCOPE [None]
